FAERS Safety Report 25450772 (Version 1)
Quarter: 2025Q2

REPORT INFORMATION
  Report Type: Report from Study
  Country: US (occurrence: US)
  Receive Date: 20250618
  Receipt Date: 20250618
  Transmission Date: 20250716
  Serious: Yes (Other)
  Sender: ABBVIE
  Company Number: US-ABBVIE-6326337

PATIENT
  Sex: Male

DRUGS (1)
  1. HUMIRA [Suspect]
     Active Substance: ADALIMUMAB
     Indication: Product used for unknown indication
     Route: 058

REACTIONS (5)
  - Retinal detachment [Recovering/Resolving]
  - Pain [Recovering/Resolving]
  - Anxiety [Recovering/Resolving]
  - Drug dependence [Recovering/Resolving]
  - Nervousness [Recovering/Resolving]
